FAERS Safety Report 13860056 (Version 1)
Quarter: 2017Q3

REPORT INFORMATION
  Report Type: Report from Study
  Country: None (occurrence: BR)
  Receive Date: 20170811
  Receipt Date: 20170811
  Transmission Date: 20171127
  Serious: Yes (Other)
  Sender: FDA-Public Use
  Company Number: BR-ABBVIE-17K-020-2062797-00

PATIENT
  Age: 62 Year
  Sex: Female

DRUGS (1)
  1. HUMIRA [Suspect]
     Active Substance: ADALIMUMAB
     Indication: RHEUMATOID ARTHRITIS
     Route: 058
     Dates: start: 20120603, end: 20170612

REACTIONS (13)
  - Nodule [Unknown]
  - Neoplasm malignant [Unknown]
  - Neoplasm [Unknown]
  - Coronary artery disease [Unknown]
  - Dyspnoea [Not Recovered/Not Resolved]
  - Pulmonary fibrosis [Unknown]
  - Malaise [Unknown]
  - Blood pressure increased [Recovering/Resolving]
  - Cardiac disorder [Unknown]
  - Dizziness [Unknown]
  - Cyst [Unknown]
  - Emphysema [Unknown]
  - Fatigue [Unknown]

NARRATIVE: CASE EVENT DATE: 201707
